FAERS Safety Report 5511279-7 (Version None)
Quarter: 2007Q4

REPORT INFORMATION
  Report Type: 
  Country: None (occurrence: None)
  Receive Date: 20071109
  Receipt Date: 20071030
  Transmission Date: 20080405
  Serious: Yes (Other)
  Sender: FDA-Public Use
  Company Number: US-WYE-H00973107

PATIENT
  Sex: Male

DRUGS (2)
  1. TORISEL [Suspect]
     Indication: RENAL CELL CARCINOMA STAGE UNSPECIFIED
     Route: 042
     Dates: start: 20071003, end: 20071010
  2. TORISEL [Suspect]
     Route: 042
     Dates: start: 20071023

REACTIONS (4)
  - BLOOD CREATININE INCREASED [None]
  - COUGH [None]
  - DYSPNOEA [None]
  - PROTEIN URINE [None]
